FAERS Safety Report 13198933 (Version 4)
Quarter: 2018Q2

REPORT INFORMATION
  Report Type: Report from Study
  Country: US (occurrence: US)
  Receive Date: 20170208
  Receipt Date: 20180528
  Transmission Date: 20180711
  Serious: Yes (Hospitalization)
  Sender: FDA-Public Use
  Company Number: PHHO2017US002563

PATIENT
  Age: 68 Year
  Sex: Male
  Weight: 81.3 kg

DRUGS (17)
  1. CIPRO [Suspect]
     Active Substance: CIPROFLOXACIN HYDROCHLORIDE
     Indication: ANTIBIOTIC PROPHYLAXIS
     Dosage: 500 MG, BID
     Route: 048
     Dates: start: 20170112, end: 20170124
  2. URSODIOL. [Concomitant]
     Active Substance: URSODIOL
     Indication: PRODUCT USED FOR UNKNOWN INDICATION
     Dosage: 300 MG, BID
     Route: 065
     Dates: start: 20170112
  3. FLUDARABINE [Concomitant]
     Active Substance: FLUDARABINE PHOSPHATE
     Indication: TRANSPLANT
     Dosage: 30 MG/M2, FOR 4 DAYS
     Route: 065
  4. SIROLIMUS. [Concomitant]
     Active Substance: SIROLIMUS
     Indication: GRAFT VERSUS HOST DISEASE
     Dosage: 2 MG, QD (DOSE ADJUSTED BASED ON LEVELS
     Route: 065
     Dates: start: 20160116
  5. MICAFUNGIN [Concomitant]
     Active Substance: MICAFUNGIN
     Indication: ANTIBIOTIC PROPHYLAXIS
     Dosage: 50 MG, QD
     Route: 065
     Dates: start: 20170113, end: 20170131
  6. TACROLIMUS. [Concomitant]
     Active Substance: TACROLIMUS
     Indication: GRAFT VERSUS HOST DISEASE
     Dosage: UNK (DOSE ADJUSTED BASED ON THE LEVELS)
     Route: 065
     Dates: start: 20170114
  7. MELPHALAN. [Concomitant]
     Active Substance: MELPHALAN
     Indication: TRANSPLANT
     Dosage: 140 MG/M2, UNK
     Route: 065
  8. RAPAMYCIN [Concomitant]
     Active Substance: SIROLIMUS
     Indication: GRAFT VERSUS HOST DISEASE
     Dosage: UNK
     Route: 065
  9. LEVOFLOXACIN. [Concomitant]
     Active Substance: LEVOFLOXACIN
     Indication: ANTIBIOTIC PROPHYLAXIS
     Dosage: 500 MG, QD
     Route: 065
     Dates: start: 20160124
  10. ACYCLOVIR. [Concomitant]
     Active Substance: ACYCLOVIR
     Indication: ANTIBIOTIC PROPHYLAXIS
     Dosage: 800 MG, BID
     Route: 048
     Dates: start: 20170113
  11. LEVOTHYROXINE. [Concomitant]
     Active Substance: LEVOTHYROXINE
     Indication: PRODUCT USED FOR UNKNOWN INDICATION
     Dosage: 125 UG, QD
     Route: 048
  12. FARYDAK [Suspect]
     Active Substance: PANOBINOSTAT
     Indication: GRAFT VERSUS HOST DISEASE
     Dosage: 5 MG, TIW
     Route: 048
     Dates: start: 20170112, end: 20170123
  13. FARYDAK [Suspect]
     Active Substance: PANOBINOSTAT
     Dosage: 5 MG, TIW
     Route: 048
     Dates: start: 20170201, end: 20170202
  14. CEFEPIME [Concomitant]
     Active Substance: CEFEPIME HYDROCHLORIDE
     Indication: FEBRILE NEUTROPENIA
     Dosage: 1000 MG, BID
  15. PANTOPRAZOLE [Concomitant]
     Active Substance: PANTOPRAZOLE
     Indication: PRODUCT USED FOR UNKNOWN INDICATION
     Dosage: 40 MG, QD
     Route: 048
     Dates: start: 20170113
  16. MAGNESIUM SULFATE. [Concomitant]
     Active Substance: MAGNESIUM SULFATE
     Indication: PRODUCT USED FOR UNKNOWN INDICATION
     Dosage: 2 G, QD
     Route: 042
     Dates: start: 20170112
  17. CEFDINIR. [Concomitant]
     Active Substance: CEFDINIR
     Indication: PRODUCT USED FOR UNKNOWN INDICATION
     Dosage: 300 MG, UNK
     Route: 065
     Dates: start: 20170113

REACTIONS (4)
  - Hypersensitivity [Recovered/Resolved]
  - Periorbital oedema [Recovered/Resolved]
  - Rash maculo-papular [Recovered/Resolved]
  - Rash maculo-papular [Recovered/Resolved]

NARRATIVE: CASE EVENT DATE: 20170119
